FAERS Safety Report 5241771-4 (Version None)
Quarter: 2007Q1

REPORT INFORMATION
  Report Type: 
  Country: None (occurrence: None)
  Receive Date: 20070220
  Receipt Date: 20070213
  Transmission Date: 20070707
  Serious: Yes (Other)
  Sender: FDA-Public Use
  Company Number: 2007UW02951

PATIENT
  Age: 69 Year
  Sex: Female
  Weight: 80 kg

DRUGS (6)
  1. ATENOLOL [Suspect]
     Indication: HYPERTENSION
     Route: 048
     Dates: start: 20050101
  2. RIVOTRIL [Concomitant]
     Indication: ANXIETY
     Route: 048
     Dates: start: 20060901
  3. GINKO BILOBA [Concomitant]
     Indication: LABYRINTHITIS
     Route: 048
     Dates: start: 20020101
  4. CALCIUM [Concomitant]
     Indication: OSTEOPOROSIS
     Route: 048
     Dates: start: 20070201
  5. TOLREST [Concomitant]
     Indication: DEPRESSION
     Route: 048
     Dates: start: 20061101
  6. OSSIOTRAT [Concomitant]
     Indication: OSTEOPOROSIS
     Route: 048
     Dates: start: 20060101, end: 20070101

REACTIONS (1)
  - HYPERTENSIVE CRISIS [None]
